FAERS Safety Report 15622163 (Version 1)
Quarter: 2018Q4

REPORT INFORMATION
  Report Type: Spontaneous
  Country: ZA (occurrence: ZA)
  Receive Date: 20181115
  Receipt Date: 20181115
  Transmission Date: 20190205
  Serious: Yes (Hospitalization)
  Sender: FDA-Public Use
  Company Number: ZA-PFIZER INC-2018455155

PATIENT
  Age: 54 Year
  Sex: Female

DRUGS (3)
  1. SYNALEVE [CAFFEINE;CODEINE PHOSPHATE;MEPROBAMATE;PARACETAMOL] [Concomitant]
     Dosage: UNK
     Dates: start: 201808
  2. SUTENT [Suspect]
     Active Substance: SUNITINIB MALATE
     Indication: METASTATIC RENAL CELL CARCINOMA
     Dosage: 50 MG, UNK
     Dates: start: 20180702, end: 201810
  3. TRAMACET [Concomitant]
     Active Substance: ACETAMINOPHEN\TRAMADOL

REACTIONS (4)
  - Dizziness [Recovering/Resolving]
  - Hypotension [Recovering/Resolving]
  - Neoplasm progression [Unknown]
  - Vaginal haemorrhage [Recovering/Resolving]

NARRATIVE: CASE EVENT DATE: 201809
